FAERS Safety Report 13272522 (Version 1)
Quarter: 2017Q1

REPORT INFORMATION
  Report Type: Spontaneous
  Country: US (occurrence: US)
  Receive Date: 20170226
  Receipt Date: 20170226
  Transmission Date: 20170428
  Serious: Yes (Other)
  Sender: FDA-Public Use
  Company Number: None

PATIENT
  Age: 52 Year
  Sex: Female
  Weight: 90 kg

DRUGS (5)
  1. AMBIEN [Concomitant]
     Active Substance: ZOLPIDEM TARTRATE
  2. VITAMIN D [Concomitant]
     Active Substance: CHOLECALCIFEROL
  3. VITAMIN B12 LIQUID [Concomitant]
  4. BROMPHEN / PSEUDO /DEXTROSE HB [Suspect]
     Active Substance: BROMPHENIRAMINE MALEATE\DEXTROMETHORPHAN HYDROBROMIDE\PSEUDOEPHEDRINE HYDROCHLORIDE
     Indication: SINUS CONGESTION
     Dosage: QUANTITY:10 TEASPOON(S);?
     Route: 048
     Dates: start: 20170220, end: 20170225
  5. ADVIL [Concomitant]
     Active Substance: IBUPROFEN

REACTIONS (3)
  - Pain in extremity [None]
  - Arthralgia [None]
  - Swelling [None]

NARRATIVE: CASE EVENT DATE: 20170222
